FAERS Safety Report 4978807-1 (Version None)
Quarter: 2006Q2

REPORT INFORMATION
  Report Type: 
  Country: None (occurrence: None)
  Receive Date: 20060417
  Receipt Date: 20060403
  Transmission Date: 20061013
  Serious: Yes (Other)
  Sender: FDA-Public Use
  Company Number: 223763

PATIENT
  Age: 74 Year
  Sex: Female
  Weight: 46 kg

DRUGS (1)
  1. MABTHERA            (RITUXIMAB) [Suspect]
     Indication: NON-HODGKIN'S LYMPHOMA
     Dosage: 500 MG, INTRAVENOUS
     Route: 042
     Dates: start: 20021004, end: 20051122

REACTIONS (3)
  - BONE MARROW FAILURE [None]
  - CHRONIC LYMPHOCYTIC LEUKAEMIA TRANSFORMATION [None]
  - SPLENOMEGALY [None]
